FAERS Safety Report 8854644 (Version 2)
Quarter: 2014Q2

REPORT INFORMATION
  Report Type: Spontaneous
  Country: US (occurrence: US)
  Receive Date: 20121023
  Receipt Date: 20140515
  Transmission Date: 20141212
  Serious: Yes (Hospitalization)
  Sender: FDA-Public Use
  Company Number: US-MYLANLABS-2012S1021196

PATIENT
  Age: 20 Year
  Sex: Male

DRUGS (12)
  1. DOXEPIN [Suspect]
     Indication: OVERDOSE
     Dosage: KNOWN ACCESS TO }3G
     Route: 065
  2. CITALOPRAM [Suspect]
     Indication: OVERDOSE
     Dosage: KNOWN ACCESS TO 1.2G
     Route: 065
  3. LEVETIRACETAM [Suspect]
     Indication: OVERDOSE
     Route: 065
  4. LIPID EMULSION [Suspect]
     Indication: CARDIAC ARREST
     Dosage: 1.5 ML/KG OF 20%; THEN 0.25 ML/KG/MIN FOR 30 MIN; 2ND BOLUS GIVEN 2H LATER; TOTAL: 1210CC
     Route: 040
  5. LIPID EMULSION [Suspect]
     Indication: CARDIAC ARREST
     Dosage: 0.25 ML/KG/MIN FOR 30 MIN; REPEATED AFTER 2ND BOLUS; TOTAL: 1210CC
     Route: 041
  6. LORAZEPAM [Concomitant]
     Dosage: INITIAL TREATMENT IN EMERGENCY DEPARTMENT
  7. FOSPHENYTOIN [Concomitant]
     Dosage: INITIAL TREATMENT IN EMERGENCY DEPARTMENT
  8. SODIUM BICARBONATE [Concomitant]
     Indication: ELECTROCARDIOGRAM QRS COMPLEX PROLONGED
     Dosage: 150MEQ; FOLLOWED BY ADDITIONAL DOSES; TOTAL: 1550MEQ
     Route: 042
  9. SODIUM BICARBONATE [Concomitant]
     Indication: CARDIAC ARREST
     Dosage: ADDITIONAL DOSES; TOTAL: 1550MEQ
     Route: 042
  10. EPINEPHRINE [Concomitant]
     Indication: CARDIAC ARREST
  11. NOREPINEPHRINE [Concomitant]
     Dosage: INFUSION
  12. AMIODARONE [Concomitant]
     Dosage: INFUSION

REACTIONS (10)
  - Overdose [Recovered/Resolved]
  - Toxicity to various agents [Recovered/Resolved]
  - Unresponsive to stimuli [Recovered/Resolved]
  - Generalised tonic-clonic seizure [Recovered/Resolved]
  - Electrocardiogram QRS complex prolonged [Recovered/Resolved]
  - Cardiac arrest [Recovered/Resolved]
  - Hypotension [Recovered/Resolved]
  - Pancreatitis [Recovering/Resolving]
  - Hyperlipidaemia [Recovering/Resolving]
  - Laboratory test interference [Recovered/Resolved]
